FAERS Safety Report 7283182-6 (Version None)
Quarter: 2011Q2

REPORT INFORMATION
  Report Type: 
  Country: None (occurrence: None)
  Receive Date: 20110209
  Receipt Date: 20110128
  Transmission Date: 20111010
  Serious: Yes (Hospitalization, Other)
  Sender: FDA-Public Use
  Company Number: US-JNJFOC-20101005943

PATIENT
  Sex: Female
  Weight: 79.2 kg

DRUGS (24)
  1. ORTHO-NOVUM 1/50 21 [Suspect]
     Indication: CONTRACEPTION
     Route: 048
  2. FLUNISOLIDE [Concomitant]
     Route: 045
  3. FLUOCINONIDE [Concomitant]
     Route: 065
  4. RETIN-A MICRO [Concomitant]
     Route: 061
  5. FLUNISOLIDE [Concomitant]
     Route: 045
  6. FLUNISOLIDE [Concomitant]
     Route: 045
  7. FLUNISOLIDE [Concomitant]
     Route: 045
  8. MICROGESTIN FE 1.5/30 [Suspect]
     Route: 048
  9. RETIN-A MICRO [Concomitant]
     Route: 061
  10. FLUNISOLIDE [Concomitant]
     Route: 045
  11. MICROGESTIN FE 1.5/30 [Suspect]
     Route: 048
  12. LEVLEN 28 [Suspect]
     Route: 048
  13. FLUNISOLIDE [Concomitant]
     Route: 045
  14. FLUNISOLIDE [Concomitant]
     Route: 045
  15. MICROGESTIN FE 1.5/30 [Suspect]
     Indication: PRODUCT USED FOR UNKNOWN INDICATION
     Route: 048
  16. CLARITIN [Concomitant]
     Indication: HYPERSENSITIVITY
     Route: 048
  17. FLUOCINONIDE [Concomitant]
     Route: 065
  18. FLUNISOLIDE [Concomitant]
     Route: 045
  19. MICROGESTIN FE 1.5/30 [Suspect]
     Route: 048
  20. LEVLEN 28 [Suspect]
     Indication: PRODUCT USED FOR UNKNOWN INDICATION
     Route: 048
  21. FLUNISOLIDE [Concomitant]
     Route: 045
  22. MICROGESTIN FE 1.5/30 [Suspect]
     Route: 048
  23. RETIN-A MICRO [Concomitant]
     Route: 061
  24. FLUOCINONIDE [Concomitant]
     Route: 065

REACTIONS (1)
  - BREAST CANCER IN SITU [None]
